FAERS Safety Report 5249833-2 (Version None)
Quarter: 2007Q1

REPORT INFORMATION
  Report Type: 
  Country: None (occurrence: None)
  Receive Date: 20070228
  Receipt Date: 20070227
  Transmission Date: 20070707
  Serious: Yes (Other)
  Sender: FDA-Public Use
  Company Number: US-GLAXOSMITHKLINE-A0639550A

PATIENT
  Age: 48 Year
  Sex: Male

DRUGS (4)
  1. ADVAIR DISKUS 100/50 [Suspect]
     Indication: ASTHMA
     Route: 055
     Dates: start: 20030101
  2. RHINOCORT [Concomitant]
  3. GUAIFENESIN [Concomitant]
  4. PREDNISONE [Concomitant]

REACTIONS (2)
  - CHEST DISCOMFORT [None]
  - PHARMACEUTICAL PRODUCT COMPLAINT [None]
